FAERS Safety Report 5103816-1 (Version None)
Quarter: 2006Q3

REPORT INFORMATION
  Report Type: 
  Country: None (occurrence: None)
  Receive Date: 20060913
  Receipt Date: 20060901
  Transmission Date: 20061208
  Serious: Yes (Hospitalization)
  Sender: FDA-Public Use
  Company Number: PHNU2006DE03096

PATIENT
  Sex: Female

DRUGS (8)
  1. SANDIMMUNE [Suspect]
     Indication: HEART TRANSPLANT
     Dosage: 100 MG, QD
     Route: 048
  2. CERTICAN [Concomitant]
     Indication: HEART TRANSPLANT
     Dosage: 0.5 MG, BID
     Route: 048
  3. PLAVIX [Concomitant]
  4. DECORTIN [Concomitant]
  5. DILZEM [Concomitant]
  6. XANEF [Concomitant]
  7. LOCOL [Concomitant]
  8. ALLOPURINOL [Concomitant]

REACTIONS (2)
  - ANGIOPATHY [None]
  - STENT PLACEMENT [None]
